FAERS Safety Report 5078891-3 (Version None)
Quarter: 2006Q3

REPORT INFORMATION
  Report Type: 
  Country: None (occurrence: None)
  Receive Date: 20060814
  Receipt Date: 20060802
  Transmission Date: 20061208
  Serious: Yes (Hospitalization)
  Sender: FDA-Public Use
  Company Number: US-BRISTOL-MYERS SQUIBB COMPANY-13463963

PATIENT
  Age: 76 Year
  Sex: Female
  Weight: 75 kg

DRUGS (12)
  1. COUMADIN [Suspect]
     Indication: DEEP VEIN THROMBOSIS
     Dosage: TAKING WARFARIN SODIUM IN VARYING DOSES FOR 1.5 YEARS
  2. COUMADIN [Suspect]
     Indication: ATRIAL FIBRILLATION
     Dosage: TAKING WARFARIN SODIUM IN VARYING DOSES FOR 1.5 YEARS
  3. SOLU-MEDROL [Concomitant]
  4. LIPITOR [Concomitant]
  5. NEURONTIN [Concomitant]
  6. LOPRESSOR [Concomitant]
  7. NOVOLOG [Concomitant]
  8. LANTUS [Concomitant]
  9. LEVAQUIN [Concomitant]
  10. PREDNISONE [Concomitant]
  11. ACETAMINOPHEN [Concomitant]
  12. LASIX [Concomitant]

REACTIONS (3)
  - CONFUSIONAL STATE [None]
  - INTERNATIONAL NORMALISED RATIO FLUCTUATION [None]
  - PNEUMONIA [None]
